FAERS Safety Report 4692959-2 (Version None)
Quarter: 2005Q2

REPORT INFORMATION
  Report Type: 
  Country: None (occurrence: None)
  Receive Date: 20050617
  Receipt Date: 20050603
  Transmission Date: 20051028
  Serious: Yes (Hospitalization)
  Sender: FDA-Public Use
  Company Number: TR-JNJFOC-20050601362

PATIENT
  Sex: Male
  Weight: 54 kg

DRUGS (3)
  1. REMICADE [Suspect]
     Indication: ANKYLOSING SPONDYLITIS
     Dosage: 7TH INFUSION. 3MG/KG
     Route: 042
  2. MELOXICAM [Concomitant]
     Indication: ANKYLOSING SPONDYLITIS
     Route: 049
  3. LANSOPRAZOL [Concomitant]
     Indication: PROPHYLAXIS
     Route: 049

REACTIONS (1)
  - TUBERCULOSIS [None]
